FAERS Safety Report 8304510-6 (Version None)
Quarter: 2012Q2

REPORT INFORMATION
  Report Type: 
  Country: None (occurrence: None)
  Receive Date: 20120423
  Receipt Date: 20120412
  Transmission Date: 20120825
  Serious: Yes (Hospitalization)
  Sender: FDA-Public Use
  Company Number: US-GLAXOSMITHKLINE-A0798100A

PATIENT
  Age: 62 Year
  Sex: Male
  Weight: 193.6 kg

DRUGS (7)
  1. AVANDAMET [Suspect]
     Indication: DIABETES MELLITUS
     Dosage: 1TAB TWICE PER DAY
     Route: 048
     Dates: start: 20041001, end: 20050101
  2. METFORMIN HCL [Concomitant]
  3. ACTOS [Concomitant]
  4. LEVOTHYROXINE SODIUM [Concomitant]
  5. AVANDIA [Suspect]
     Indication: TYPE 2 DIABETES MELLITUS
     Dosage: 4MG PER DAY
     Route: 048
     Dates: start: 20040901, end: 20070601
  6. OMEPRAZOLE [Concomitant]
  7. DOCUSATE SODIUM [Concomitant]

REACTIONS (4)
  - CARDIOGENIC SHOCK [None]
  - MYOCARDIAL INFARCTION [None]
  - CARDIAC DISORDER [None]
  - CARDIAC FAILURE [None]
